FAERS Safety Report 5738817-3 (Version None)
Quarter: 2008Q2

REPORT INFORMATION
  Report Type: 
  Country: None (occurrence: None)
  Receive Date: 20080515
  Receipt Date: 20080320
  Transmission Date: 20081010
  Serious: No
  Sender: FDA-Public Use
  Company Number: A0716688A

PATIENT
  Age: 16 Year
  Sex: Female

DRUGS (2)
  1. VERAMYST [Suspect]
     Dosage: 27.5MCG PER DAY
     Route: 045
     Dates: end: 20080317
  2. NO CONCURRENT MEDICATION [Concomitant]

REACTIONS (3)
  - EPISTAXIS [None]
  - FACE INJURY [None]
  - NASAL ULCER [None]
